FAERS Safety Report 9139439 (Version 1)
Quarter: 2013Q1

REPORT INFORMATION
  Report Type: Spontaneous
  Country: NG (occurrence: NG)
  Receive Date: 20130305
  Receipt Date: 20130305
  Transmission Date: 20140127
  Serious: Yes (Hospitalization)
  Sender: FDA-Public Use
  Company Number: NG-MYLANLABS-2013S1004114

PATIENT
  Age: 25 Year
  Sex: Male

DRUGS (2)
  1. DIAZEPAM [Suspect]
     Indication: PREMEDICATION
     Route: 041
  2. OCTOCAINE WITH EPINEPHRINE [Concomitant]
     Route: 050

REACTIONS (15)
  - Idiosyncratic drug reaction [Recovering/Resolving]
  - Tachycardia [Recovered/Resolved]
  - Blister [Recovered/Resolved]
  - Local swelling [Recovering/Resolving]
  - Pain in extremity [Unknown]
  - Pyrexia [Unknown]
  - Diplopia [Unknown]
  - Headache [Unknown]
  - Hypotension [Recovered/Resolved]
  - Hypertension [Recovered/Resolved]
  - Chest discomfort [Unknown]
  - Dizziness [Unknown]
  - Restlessness [Recovering/Resolving]
  - Aggression [Recovering/Resolving]
  - Disorientation [Unknown]
